FAERS Safety Report 6578002-9 (Version None)
Quarter: 2010Q1

REPORT INFORMATION
  Report Type: 
  Country: None (occurrence: None)
  Receive Date: 20100211
  Receipt Date: 20091016
  Transmission Date: 20100710
  Serious: No
  Sender: FDA-Public Use
  Company Number: US-BRISTOL-MYERS SQUIBB COMPANY-14822019

PATIENT

DRUGS (2)
  1. IXEMPRA KIT [Suspect]
  2. SALINE [Suspect]

REACTIONS (1)
  - DRUG ADMINISTRATION ERROR [None]
